FAERS Safety Report 7598116 (Version 3)
Quarter: 2014Q2

REPORT INFORMATION
  Report Type: Spontaneous
  Country: US (occurrence: US)
  Receive Date: 20100920
  Receipt Date: 20140515
  Transmission Date: 20141212
  Serious: No
  Sender: FDA-Public Use
  Company Number: US-ASTRAZENECA-2009SE16831

PATIENT
  Age: 55 Year
  Sex: Female

DRUGS (13)
  1. SEROQUEL [Suspect]
     Indication: DEPRESSION
     Route: 048
     Dates: start: 2008, end: 2009
  2. SEROQUEL [Suspect]
     Indication: ANXIETY
     Route: 048
     Dates: start: 2008, end: 2009
  3. SEROQUEL [Suspect]
     Indication: DEPRESSION
     Route: 048
     Dates: start: 2009, end: 20140313
  4. SEROQUEL [Suspect]
     Indication: ANXIETY
     Route: 048
     Dates: start: 2009, end: 20140313
  5. SEROQUEL [Suspect]
     Indication: DEPRESSION
     Dosage: GENERIC
     Route: 048
     Dates: start: 20140313
  6. SEROQUEL [Suspect]
     Indication: ANXIETY
     Dosage: GENERIC
     Route: 048
     Dates: start: 20140313
  7. OMEPRAZOLE [Suspect]
     Indication: GASTROOESOPHAGEAL REFLUX DISEASE
     Route: 048
     Dates: start: 2009
  8. LISINOPRIL [Suspect]
     Indication: BLOOD PRESSURE
     Route: 048
     Dates: start: 2006
  9. LAMICTAL [Concomitant]
     Indication: ANXIETY
     Route: 048
     Dates: start: 2009
  10. CLARITIN [Concomitant]
     Indication: MULTIPLE ALLERGIES
     Dosage: UNKNOWN PRN
     Route: 048
     Dates: start: 2009
  11. FLONASE [Concomitant]
     Indication: MULTIPLE ALLERGIES
     Dosage: UNKNOWN PRN
     Route: 045
     Dates: start: 2009
  12. TEMAZEPAM [Concomitant]
     Indication: INSOMNIA
     Dosage: 30MG QHS
     Route: 048
  13. ATIVAN [Concomitant]
     Indication: ANXIETY
     Dosage: 1MG TID PRN
     Route: 048

REACTIONS (17)
  - Anxiety [Unknown]
  - Headache [Unknown]
  - Insomnia [Unknown]
  - Depression [Unknown]
  - Dyslexia [Unknown]
  - Decreased appetite [Unknown]
  - Listless [Unknown]
  - Depressed mood [Unknown]
  - Adverse event [Unknown]
  - Crying [Unknown]
  - Speech disorder [Unknown]
  - Confusional state [Unknown]
  - Memory impairment [Unknown]
  - Hypersomnia [Unknown]
  - Muscle spasms [Unknown]
  - Nightmare [Unknown]
  - Intentional product misuse [Unknown]
